FAERS Safety Report 13642883 (Version 1)
Quarter: 2017Q2

REPORT INFORMATION
  Report Type: Spontaneous
  Country: BE (occurrence: BE)
  Receive Date: 20170612
  Receipt Date: 20170612
  Transmission Date: 20170830
  Serious: Yes (Other)
  Sender: FDA-Public Use
  Company Number: BE-AMGEN-BELSP2017086525

PATIENT
  Sex: Female

DRUGS (3)
  1. CARBOPLATIN TAXOL [Concomitant]
     Active Substance: CARBOPLATIN\PACLITAXEL
     Indication: MALIGNANT PERITONEAL NEOPLASM
  2. PROLIA [Suspect]
     Active Substance: DENOSUMAB
     Indication: PRODUCT USED FOR UNKNOWN INDICATION
     Dosage: UNK
     Route: 065
  3. CARBOPLATIN TAXOL [Concomitant]
     Active Substance: CARBOPLATIN\PACLITAXEL
     Indication: OVARIAN CANCER

REACTIONS (2)
  - Ovarian cancer [Unknown]
  - Malignant peritoneal neoplasm [Unknown]
